FAERS Safety Report 4523451-3 (Version None)
Quarter: 2004Q4

REPORT INFORMATION
  Report Type: 
  Country: None (occurrence: None)
  Receive Date: 20041117
  Receipt Date: 20040601
  Transmission Date: 20050328
  Serious: Yes (Hospitalization)
  Sender: FDA-Public Use
  Company Number: US-JNJFOC-20040600959

PATIENT
  Age: 68 Year
  Sex: Male
  Weight: 79.5 kg

DRUGS (13)
  1. LEVAQUIN [Suspect]
     Indication: LOBAR PNEUMONIA
     Dosage: INTRAVENOUS
     Route: 042
     Dates: end: 20040405
  2. LEVAQUIN [Suspect]
     Indication: PNEUMONIA
     Dosage: ORAL
     Route: 048
     Dates: start: 20040324, end: 20040325
  3. ZITHROMAX [Suspect]
     Indication: PNEUMONIA
  4. ACTOS [Concomitant]
  5. SYNTHROID [Concomitant]
  6. LISINOPRIL [Concomitant]
  7. ACETYLSALICYLIC ACID SRT [Concomitant]
  8. PROZAC [Concomitant]
  9. COMPAZINE [Concomitant]
  10. IMODIUM [Concomitant]
  11. VIOXX [Concomitant]
  12. VICODIN [Concomitant]
  13. AMARYL [Concomitant]

REACTIONS (4)
  - AZOTAEMIA [None]
  - DIARRHOEA [None]
  - GASTROENTERITIS [None]
  - PNEUMONIA [None]
